FAERS Safety Report 9230629 (Version 1)
Quarter: 2013Q1

REPORT INFORMATION
  Report Type: Spontaneous
  Country: US (occurrence: None)
  Receive Date: 20121031
  Receipt Date: 20121031
  Transmission Date: 20140127
  Serious: No
  Sender: FDA-Public Use
  Company Number: PHEH2012US015668

PATIENT
  Age: 38 Year
  Sex: Female

DRUGS (4)
  1. GILENYA [Suspect]
     Route: 048
  2. VENLAFAXINE (VENLAFAXINE) [Concomitant]
  3. PIZINIDINE (PIZINIDINE) [Concomitant]
  4. CLONAZEPAM (CLONAZEPAM) [Concomitant]

REACTIONS (1)
  - Eye disorder [None]
